FAERS Safety Report 5857414-2 (Version None)
Quarter: 2008Q3

REPORT INFORMATION
  Report Type: 
  Country: None (occurrence: None)
  Receive Date: 20080825
  Receipt Date: 20080825
  Transmission Date: 20090109
  Serious: Yes (Other)
  Sender: FDA-Public Use
  Company Number: None

PATIENT
  Age: 60 Year
  Sex: Male
  Weight: 106.5953 kg

DRUGS (8)
  1. LOVASA 1 GM - PT WAS ON 4 GM/D [Suspect]
     Indication: MIXED HYPERLIPIDAEMIA
     Dosage: 4GM DAILY PO
     Route: 048
     Dates: start: 20080101, end: 20080701
  2. TOPROL-XL [Concomitant]
  3. ALTACE [Concomitant]
  4. CHLORTHALIDONE [Concomitant]
  5. VYTORIN [Concomitant]
  6. TRICOR [Concomitant]
  7. ASPIRIN [Concomitant]
  8. M.V.I. [Concomitant]

REACTIONS (1)
  - LIVER FUNCTION TEST ABNORMAL [None]
